FAERS Safety Report 8426664-3 (Version None)
Quarter: 2012Q2

REPORT INFORMATION
  Report Type: 
  Country: None (occurrence: None)
  Receive Date: 20120531
  Receipt Date: 20120517
  Transmission Date: 20120825
  Serious: Yes (Other)
  Sender: FDA-Public Use
  Company Number: 2012SP026674

PATIENT
  Age: 42 Year
  Sex: Female

DRUGS (2)
  1. DULERA [Suspect]
     Indication: ASTHMA
     Dosage: 200 MCG;BID; 100 MCG;BID
     Dates: start: 20100901, end: 20110801
  2. DULERA [Suspect]
     Indication: ASTHMA
     Dosage: 200 MCG;BID; 100 MCG;BID
     Dates: start: 20110801

REACTIONS (2)
  - DYSPHONIA [None]
  - APHONIA [None]
